FAERS Safety Report 8943223 (Version 1)
Quarter: 2012Q4

REPORT INFORMATION
  Report Type: 
  Country: US (occurrence: US)
  Receive Date: 20121204
  Receipt Date: 20121204
  Transmission Date: 20130627
  Serious: Yes (Other)
  Sender: FDA-Public Use
  Company Number: US-COVIDIEN/TYCO HEALTHCARE/MALLINCKRODT-T201204193

PATIENT
  Sex: Female

DRUGS (2)
  1. TEMAZEPAM [Suspect]
     Indication: INSOMNIA
     Dosage: 30 mg, q pm
     Route: 048
     Dates: start: 2009, end: 2009
  2. TEMAZEPAM [Suspect]
     Dosage: 15 mg, q pm
     Dates: start: 2009, end: 2012

REACTIONS (3)
  - Adrenal disorder [Unknown]
  - Nervous system disorder [Unknown]
  - Insomnia [Not Recovered/Not Resolved]
